FAERS Safety Report 8070266-8 (Version None)
Quarter: 2012Q1

REPORT INFORMATION
  Report Type: 
  Country: None (occurrence: None)
  Receive Date: 20120125
  Receipt Date: 20120118
  Transmission Date: 20120608
  Serious: Yes (Hospitalization)
  Sender: FDA-Public Use
  Company Number: GR-ABBOTT-12P-066-0895790-00

PATIENT
  Age: 82 Year
  Sex: Female

DRUGS (9)
  1. MEMANTINE HYDROCHLORIDE [Concomitant]
     Indication: SENILE DEMENTIA
  2. ENEMAS [Concomitant]
     Indication: CONSTIPATION
  3. RIVASTIGMINE [Concomitant]
     Indication: SENILE DEMENTIA
  4. RISPERIDONE [Concomitant]
     Indication: SENILE DEMENTIA
  5. DIGOXIN [Concomitant]
     Indication: ATRIAL FIBRILLATION
  6. ACENOCOUMAROL [Concomitant]
     Indication: ATRIAL FIBRILLATION
     Dosage: (1-4 MG DAILY)
  7. LAXATIVES [Concomitant]
     Indication: CONSTIPATION
  8. CIPROFLOXACIN [Concomitant]
     Indication: URINARY TRACT INFECTION
  9. BIPERIDEN HYDROCHLORIDE TAB [Suspect]
     Indication: EXTRAPYRAMIDAL DISORDER
     Route: 065

REACTIONS (1)
  - LARGE INTESTINE PERFORATION [None]
